FAERS Safety Report 6095525-X (Version None)
Quarter: 2009Q1

REPORT INFORMATION
  Report Type: 
  Country: None (occurrence: None)
  Receive Date: 20090227
  Receipt Date: 20080410
  Transmission Date: 20090719
  Serious: No
  Sender: FDA-Public Use
  Company Number: A0723735A

PATIENT
  Sex: Female

DRUGS (3)
  1. LAMICTAL [Suspect]
     Indication: DRUG USE FOR UNKNOWN INDICATION
     Dosage: 200MG UNKNOWN
     Route: 048
  2. CLARITHROMYCIN [Suspect]
     Indication: DRUG USE FOR UNKNOWN INDICATION
     Dosage: 500MG UNKNOWN
     Route: 048
  3. MUCINEX [Suspect]
     Indication: DRUG USE FOR UNKNOWN INDICATION
     Route: 048

REACTIONS (8)
  - DIZZINESS [None]
  - DYSPNOEA [None]
  - EUPHORIC MOOD [None]
  - EXOPHTHALMOS [None]
  - HYPOAESTHESIA [None]
  - INSOMNIA [None]
  - MALAISE [None]
  - THINKING ABNORMAL [None]
